FAERS Safety Report 4324141-2 (Version None)
Quarter: 2004Q1

REPORT INFORMATION
  Report Type: 
  Country: None (occurrence: None)
  Receive Date: 20040326
  Receipt Date: 20031229
  Transmission Date: 20041129
  Serious: No
  Sender: FDA-Public Use
  Company Number: US-GLAXOSMITHKLINE-A0490798A

PATIENT
  Age: 75 Year
  Sex: Male

DRUGS (4)
  1. ADVAIR DISKUS 100/50 [Suspect]
     Indication: EMPHYSEMA
     Dosage: 1PUFF TWICE PER DAY
     Route: 055
     Dates: start: 20030201
  2. DIGITEK [Concomitant]
  3. TOPROL-XL [Concomitant]
  4. COUMADIN [Concomitant]

REACTIONS (1)
  - DRY THROAT [None]
